FAERS Safety Report 23689419 (Version 1)
Quarter: 2024Q1

REPORT INFORMATION
  Report Type: Spontaneous
  Country: US (occurrence: US)
  Receive Date: 20240331
  Receipt Date: 20240331
  Transmission Date: 20240409
  Serious: No
  Sender: FDA-Public Use
  Company Number: US-TEVA-VS-3152073

PATIENT
  Age: 66 Year
  Sex: Female

DRUGS (1)
  1. AUSTEDO [Suspect]
     Active Substance: DEUTETRABENAZINE
     Indication: Product used for unknown indication
     Dosage: TAKE 6 MG BY MOUTH IN THE MORNING AND 6 MG IN THE EVENING.
     Route: 048
     Dates: start: 20240111

REACTIONS (3)
  - Movement disorder [Unknown]
  - Dry skin [Unknown]
  - Fatigue [Unknown]
